FAERS Safety Report 6612056-6 (Version None)
Quarter: 2010Q1

REPORT INFORMATION
  Report Type: 
  Country: None (occurrence: None)
  Receive Date: 20100303
  Receipt Date: 20100224
  Transmission Date: 20100710
  Serious: Yes (Hospitalization)
  Sender: FDA-Public Use
  Company Number: B0631331A

PATIENT
  Sex: Female

DRUGS (12)
  1. ARIXTRA [Suspect]
     Indication: DRUG USE FOR UNKNOWN INDICATION
     Dosage: 2.5MG PER DAY
     Route: 058
     Dates: start: 20091221, end: 20091229
  2. FLUITRAN [Concomitant]
     Indication: HYPERTENSION
     Dosage: 1MG PER DAY
     Route: 048
     Dates: start: 20091125
  3. ZYLORIC [Concomitant]
     Dosage: 100MG PER DAY
     Route: 048
     Dates: start: 20091125
  4. ARTIST [Concomitant]
     Indication: HYPERTENSION
     Dosage: 10MG PER DAY
     Route: 048
     Dates: start: 20091125
  5. DIOVAN [Concomitant]
     Indication: HYPERTENSION
     Dosage: 80MG PER DAY
     Route: 048
     Dates: start: 20091125
  6. ALEVIATIN [Concomitant]
     Indication: CEREBRAL INFARCTION
     Dosage: 200MG PER DAY
     Route: 048
     Dates: start: 20091125
  7. DEPAKENE [Concomitant]
     Indication: CEREBRAL INFARCTION
     Dosage: 400MG PER DAY
     Route: 048
     Dates: start: 20091125
  8. LIPITOR [Concomitant]
     Dosage: 10MG PER DAY
     Route: 048
     Dates: start: 20091125
  9. ASPIRIN [Concomitant]
     Dosage: 100MG PER DAY
     Route: 048
     Dates: start: 20091207, end: 20091209
  10. FUROSEMIDE [Concomitant]
     Dosage: 16MG PER DAY
     Route: 048
     Dates: start: 20091125
  11. CHINESE MEDICINE [Concomitant]
     Dosage: 7.5G PER DAY
     Route: 048
     Dates: start: 20091121, end: 20091209
  12. ACTONEL [Concomitant]
     Dosage: 17.5MG PER DAY
     Route: 048
     Dates: start: 20091213

REACTIONS (2)
  - HYPONATRAEMIA [None]
  - POST PROCEDURAL HAEMORRHAGE [None]
